FAERS Safety Report 7657823-5 (Version None)
Quarter: 2011Q3

REPORT INFORMATION
  Report Type: 
  Country: None (occurrence: None)
  Receive Date: 20110805
  Receipt Date: 20110801
  Transmission Date: 20111222
  Serious: No
  Sender: FDA-Public Use
  Company Number: US-BIOGENIDEC-2010BI041662

PATIENT
  Sex: Female

DRUGS (1)
  1. TYSABRI [Suspect]
     Indication: MULTIPLE SCLEROSIS
     Route: 042
     Dates: start: 20101111

REACTIONS (6)
  - DRY SKIN [None]
  - HEADACHE [None]
  - CONTUSION [None]
  - POOR VENOUS ACCESS [None]
  - VEIN DISORDER [None]
  - STRESS [None]
